FAERS Safety Report 6737569-8 (Version None)
Quarter: 2010Q2

REPORT INFORMATION
  Report Type: 
  Country: None (occurrence: None)
  Receive Date: 20100519
  Receipt Date: 20100507
  Transmission Date: 20101027
  Serious: Yes (Hospitalization)
  Sender: FDA-Public Use
  Company Number: DSA_42757_2010

PATIENT
  Age: 65 Year
  Sex: Female

DRUGS (4)
  1. ENALAPRIL MALEATE AND HYDROCHLOROTHIAZIDE [Suspect]
     Indication: DRUG USE FOR UNKNOWN INDICATION
     Dosage: (DOSE: 20-12.5 MG DAILY ORAL)
     Route: 048
     Dates: start: 20080222, end: 20080223
  2. ASPIRIN [Concomitant]
  3. BROMAZEPAM [Concomitant]
  4. LECITHIN [Concomitant]

REACTIONS (3)
  - HYPERHIDROSIS [None]
  - PRESYNCOPE [None]
  - VISION BLURRED [None]
